FAERS Safety Report 16649015 (Version 6)
Quarter: 2021Q4

REPORT INFORMATION
  Report Type: Spontaneous
  Country: CA (occurrence: CA)
  Receive Date: 20190730
  Receipt Date: 20211011
  Transmission Date: 20220303
  Serious: Yes (Hospitalization, Other)
  Sender: FDA-Public Use
  Company Number: CA-TEVA-2019-CA-1084131

PATIENT
  Age: 44 Year
  Sex: Female

DRUGS (11)
  1. VORICONAZOLE [Suspect]
     Active Substance: VORICONAZOLE
     Indication: Acanthamoeba keratitis
     Route: 048
  2. VORICONAZOLE [Suspect]
     Active Substance: VORICONAZOLE
     Indication: Acanthamoeba keratitis
     Route: 061
  3. CHLORHEXIDINE [Suspect]
     Active Substance: CHLORHEXIDINE
     Indication: Acanthamoeba keratitis
     Dosage: TO THE RIGHT EYE
     Route: 061
  4. CHLORHEXIDINE [Suspect]
     Active Substance: CHLORHEXIDINE
     Indication: Acanthamoeba keratitis
     Dosage: TO THE RIGHT EYE
     Route: 061
  5. POLIHEXANIDE [Suspect]
     Active Substance: POLIHEXANIDE
     Indication: Acanthamoeba keratitis
     Dosage: TO THE RIGHT EYE??POLYHEXAMETHYLENE BIGUANIDE
     Route: 061
  6. POLIHEXANIDE [Suspect]
     Active Substance: POLIHEXANIDE
     Indication: Acanthamoeba keratitis
     Dosage: TO THE RIGHT EYE
     Route: 061
  7. MILTEFOSINE [Suspect]
     Active Substance: MILTEFOSINE
     Indication: Acanthamoeba keratitis
     Dosage: 150 MILLIGRAM DAILY;
     Route: 048
  8. MILTEFOSINE [Suspect]
     Active Substance: MILTEFOSINE
     Indication: Acanthamoeba keratitis
     Dosage: DECREASED
     Route: 048
  9. GATIFLOXACIN [Concomitant]
     Active Substance: GATIFLOXACIN
     Indication: Acanthamoeba keratitis
     Route: 065
  10. PREDNISOLONE ACETATE [Concomitant]
     Active Substance: PREDNISOLONE ACETATE
     Indication: Acanthamoeba keratitis
     Route: 061
  11. PREDNISOLONE ACETATE [Concomitant]
     Active Substance: PREDNISOLONE ACETATE
     Indication: Acanthamoeba keratitis
     Dosage: AFTER SECOND PENETRATING KERATOPLASTY
     Route: 061

REACTIONS (6)
  - Decreased appetite [Unknown]
  - Electrolyte imbalance [Unknown]
  - Corneal toxicity [Unknown]
  - Illness [Unknown]
  - Drug ineffective [Unknown]
  - Blood creatinine increased [Unknown]
